FAERS Safety Report 21338329 (Version 1)
Quarter: 2022Q3

REPORT INFORMATION
  Report Type: Spontaneous
  Country: US (occurrence: US)
  Receive Date: 20220915
  Receipt Date: 20220915
  Transmission Date: 20221027
  Serious: Yes (Other)
  Sender: FDA-Public Use
  Company Number: US-PFIZER INC-202201156897

PATIENT
  Age: 71 Year
  Sex: Female
  Weight: 46.286 kg

DRUGS (4)
  1. PAXLOVID [Suspect]
     Active Substance: NIRMATRELVIR\RITONAVIR
     Indication: COVID-19 treatment
     Dosage: [PF-07321332 300 MG]/[RITONAVIR 100 MG]; 2X/DAY
     Route: 048
     Dates: start: 20220828, end: 20220901
  2. IBUPROFEN [Concomitant]
     Active Substance: IBUPROFEN
     Indication: Pain
     Dosage: 200 MG, (TWO TABLETS BY MOUTH AS NEEDED)
     Route: 048
     Dates: start: 20220827, end: 202209
  3. SYNTHROID [Concomitant]
     Active Substance: LEVOTHYROXINE SODIUM
     Indication: Thyroid disorder
     Dosage: 125 UG, 1X/DAY
     Route: 048
     Dates: start: 1985
  4. METOPROLOL [Concomitant]
     Active Substance: METOPROLOL
     Indication: Blood pressure abnormal
     Dosage: 25 MG, 1X/DAY
     Route: 048
     Dates: start: 20220801

REACTIONS (3)
  - Vaginal haemorrhage [Not Recovered/Not Resolved]
  - Hypoacusis [Unknown]
  - Headache [Unknown]

NARRATIVE: CASE EVENT DATE: 20220901
